FAERS Safety Report 8423447-5 (Version None)
Quarter: 2012Q2

REPORT INFORMATION
  Report Type: 
  Country: None (occurrence: None)
  Receive Date: 20120608
  Receipt Date: 20120530
  Transmission Date: 20120825
  Serious: Yes (Hospitalization)
  Sender: FDA-Public Use
  Company Number: US-ASTRAZENECA-2012SE35550

PATIENT
  Age: 64 Year
  Sex: Female
  Weight: 41.7 kg

DRUGS (6)
  1. LORTAB [Concomitant]
  2. PARFFON FORTE [Concomitant]
     Indication: MUSCLE RELAXANT THERAPY
  3. LISINOPRIL [Concomitant]
  4. METOPROLOL SUCCINATE [Concomitant]
  5. SYMBICORT [Suspect]
     Indication: CHRONIC OBSTRUCTIVE PULMONARY DISEASE
     Route: 055
  6. VALIUM [Concomitant]

REACTIONS (5)
  - OFF LABEL USE [None]
  - INTENTIONAL DRUG MISUSE [None]
  - CEREBROVASCULAR ACCIDENT [None]
  - DRUG DOSE OMISSION [None]
  - MYOCARDIAL INFARCTION [None]
